FAERS Safety Report 5981901-X (Version None)
Quarter: 2008Q4

REPORT INFORMATION
  Report Type: 
  Country: None (occurrence: None)
  Receive Date: 20081205
  Receipt Date: 20081127
  Transmission Date: 20090506
  Serious: Yes (Other)
  Sender: FDA-Public Use
  Company Number: FI-ABBOTT-08P-055-0490061-00

PATIENT
  Age: 56 Year
  Sex: Male

DRUGS (3)
  1. HUMIRA [Suspect]
     Indication: ARTHRALGIA
  2. LYOPHILIZED POWDER [Suspect]
     Indication: ARTHRALGIA
     Route: 042
  3. LYOPHILIZED POWDER [Suspect]

REACTIONS (3)
  - ANTINUCLEAR ANTIBODY INCREASED [None]
  - NERVOUS SYSTEM DISORDER [None]
  - THERAPEUTIC RESPONSE DECREASED [None]
